FAERS Safety Report 5324487-5 (Version None)
Quarter: 2007Q2

REPORT INFORMATION
  Report Type: 
  Country: None (occurrence: None)
  Receive Date: 20070514
  Receipt Date: 20070502
  Transmission Date: 20071010
  Serious: Yes (Other)
  Sender: FDA-Public Use
  Company Number: US-PFIZER INC-2006118743

PATIENT
  Sex: Male
  Weight: 68.5 kg

DRUGS (8)
  1. NEURONTIN [Suspect]
     Indication: POST HERPETIC NEURALGIA
     Route: 048
     Dates: start: 20040101, end: 20060101
  2. LYRICA [Suspect]
     Indication: POST HERPETIC NEURALGIA
     Route: 048
     Dates: start: 20060813, end: 20060826
  3. BENADRYL [Suspect]
     Indication: RASH
  4. ARTHROTEC [Suspect]
  5. PREDNISONE TAB [Concomitant]
  6. AVAPRO [Concomitant]
  7. COMBIVENT [Concomitant]
  8. TYLENOL [Concomitant]

REACTIONS (2)
  - LUNG NEOPLASM MALIGNANT [None]
  - RASH MACULAR [None]
